FAERS Safety Report 5934830-1 (Version None)
Quarter: 2008Q4

REPORT INFORMATION
  Report Type: 
  Country: None (occurrence: None)
  Receive Date: 20081027
  Receipt Date: 20081017
  Transmission Date: 20090506
  Serious: Yes (Hospitalization)
  Sender: FDA-Public Use
  Company Number: 035511

PATIENT
  Age: 17 Year
  Sex: Female
  Weight: 68 kg

DRUGS (2)
  1. PLAN B [Suspect]
     Indication: POST COITAL CONTRACEPTION
     Dosage: 1 TABLET, Q 12HR, ORAL
     Route: 048
     Dates: start: 20081001, end: 20081001
  2. TYLENOL (CAPLET) [Suspect]

REACTIONS (2)
  - DYSPEPSIA [None]
  - OVERDOSE [None]
